FAERS Safety Report 23351530 (Version 6)
Quarter: 2024Q2

REPORT INFORMATION
  Report Type: Spontaneous
  Country: US (occurrence: US)
  Receive Date: 20231229
  Receipt Date: 20240426
  Transmission Date: 20240716
  Serious: Yes (Life-Threatening, Hospitalization, Other)
  Sender: FDA-Public Use
  Company Number: US-BRISTOL-MYERS SQUIBB COMPANY-2023-188233

PATIENT
  Age: 63 Year
  Sex: Male
  Weight: 65.8 kg

DRUGS (9)
  1. ELIQUIS [Suspect]
     Active Substance: APIXABAN
     Indication: Coronary artery disease
     Route: 048
     Dates: start: 202211
  2. ELIQUIS [Suspect]
     Active Substance: APIXABAN
     Indication: Acute myocardial infarction
     Route: 048
     Dates: start: 202311, end: 20231103
  3. PLAVIX [Suspect]
     Active Substance: CLOPIDOGREL BISULFATE
     Indication: Coronary artery disease
     Route: 048
     Dates: start: 202211
  4. PLAVIX [Suspect]
     Active Substance: CLOPIDOGREL BISULFATE
     Indication: Acute myocardial infarction
  5. INCLISIRAN [Suspect]
     Active Substance: INCLISIRAN
     Indication: Hyperlipidaemia
     Dosage: 300 MG/ 1.5 ML
     Route: 058
     Dates: start: 20230104, end: 20230927
  6. INCLISIRAN [Suspect]
     Active Substance: INCLISIRAN
     Indication: Acute coronary syndrome
  7. ROSUVASTATIN [Concomitant]
     Active Substance: ROSUVASTATIN
     Indication: Product used for unknown indication
  8. EPLERENONE [Concomitant]
     Active Substance: EPLERENONE
     Indication: Product used for unknown indication
  9. METOPROL XL [Concomitant]
     Indication: Product used for unknown indication

REACTIONS (7)
  - Upper gastrointestinal haemorrhage [Recovered/Resolved]
  - Anaemia [Recovered/Resolved]
  - Cardiac ventricular thrombosis [Recovered/Resolved]
  - Hiatus hernia [Unknown]
  - Duodenal ulcer [Unknown]
  - Off label use [Unknown]
  - Gastritis erosive [Unknown]

NARRATIVE: CASE EVENT DATE: 20230206
